FAERS Safety Report 14783701 (Version 1)
Quarter: 2018Q2

REPORT INFORMATION
  Report Type: Spontaneous
  Country: US (occurrence: US)
  Receive Date: 20180420
  Receipt Date: 20180420
  Transmission Date: 20180711
  Serious: No
  Sender: FDA-Public Use
  Company Number: US-PERRIGO-18US003242

PATIENT
  Sex: Female
  Weight: 91.16 kg

DRUGS (1)
  1. NAPROXEN SODIUM-PSEUDOEPHEDRINE HYDROCHLORIDE [Suspect]
     Active Substance: NAPROXEN SODIUM\PSEUDOEPHEDRINE HYDROCHLORIDE
     Indication: SINUSITIS
     Dosage: ONE TABLET, EVERY 12 HOURS, PRN
     Route: 048
     Dates: start: 2012, end: 201801

REACTIONS (2)
  - Therapeutic response unexpected [Unknown]
  - Off label use [Unknown]

NARRATIVE: CASE EVENT DATE: 2012
